FAERS Safety Report 20422098 (Version 1)
Quarter: 2022Q1

REPORT INFORMATION
  Report Type: Spontaneous
  Country: US (occurrence: US)
  Receive Date: 20220203
  Receipt Date: 20220203
  Transmission Date: 20220423
  Serious: No
  Sender: FDA-Public Use
  Company Number: US-TEVA-2022-US-2002723

PATIENT
  Age: 32 Year
  Sex: Female

DRUGS (2)
  1. PIMECROLIMUS [Suspect]
     Active Substance: PIMECROLIMUS
     Dosage: 1% CREAM 30 GM
     Route: 061
  2. PIMECROLIMUS [Suspect]
     Active Substance: PIMECROLIMUS
     Route: 061
     Dates: start: 20220115

REACTIONS (5)
  - Drug ineffective [Unknown]
  - Hypersensitivity [Unknown]
  - Application site urticaria [Unknown]
  - Furuncle [Unknown]
  - Product quality issue [Unknown]

NARRATIVE: CASE EVENT DATE: 20220115
